FAERS Safety Report 20066818 (Version 22)
Quarter: 2023Q4

REPORT INFORMATION
  Report Type: Spontaneous
  Country: CA (occurrence: CA)
  Receive Date: 20211115
  Receipt Date: 20231124
  Transmission Date: 20240110
  Serious: Yes (Hospitalization, Other)
  Sender: FDA-Public Use
  Company Number: CA-CELLTRION INC.-2021CA004666

PATIENT

DRUGS (25)
  1. INFLECTRA [Suspect]
     Active Substance: INFLIXIMAB-DYYB
     Indication: Colitis ulcerative
     Dosage: 275 MG, 0, 2, 6 WEEKS, THEN EVERY 8 WEEKS
     Route: 041
     Dates: start: 20201030, end: 20201111
  2. INFLECTRA [Suspect]
     Active Substance: INFLIXIMAB-DYYB
     Dosage: 275 MG, EVERY 6 WEEKS
     Route: 041
     Dates: start: 20201221, end: 20230622
  3. INFLECTRA [Suspect]
     Active Substance: INFLIXIMAB-DYYB
     Dosage: 275 MG, EVERY 6 WEEKS
     Route: 041
     Dates: start: 20210326
  4. INFLECTRA [Suspect]
     Active Substance: INFLIXIMAB-DYYB
     Dosage: 275 MG, EVERY 6 WEEKS
     Route: 041
     Dates: start: 20210622
  5. INFLECTRA [Suspect]
     Active Substance: INFLIXIMAB-DYYB
     Dosage: 275 MG, EVERY 6 WEEKS
     Route: 041
     Dates: start: 20210812
  6. INFLECTRA [Suspect]
     Active Substance: INFLIXIMAB-DYYB
     Dosage: 275 MG, EVERY 6 WEEKS
     Route: 041
     Dates: start: 20210921
  7. INFLECTRA [Suspect]
     Active Substance: INFLIXIMAB-DYYB
     Dosage: 275 MG, EVERY 6 WEEKS
     Route: 041
     Dates: start: 20211104
  8. INFLECTRA [Suspect]
     Active Substance: INFLIXIMAB-DYYB
     Dosage: 275 MG, EVERY 6 WEEKS
     Route: 041
     Dates: start: 20211214
  9. INFLECTRA [Suspect]
     Active Substance: INFLIXIMAB-DYYB
     Dosage: 275 MG, EVERY 6 WEEKS
     Route: 041
     Dates: start: 20220125
  10. INFLECTRA [Suspect]
     Active Substance: INFLIXIMAB-DYYB
     Dosage: 275 MG, EVERY 6 WEEKS
     Route: 041
     Dates: start: 20220308
  11. INFLECTRA [Suspect]
     Active Substance: INFLIXIMAB-DYYB
     Dosage: 275 MG, EVERY 6 WEEKS
     Route: 042
     Dates: start: 20220419
  12. INFLECTRA [Suspect]
     Active Substance: INFLIXIMAB-DYYB
     Dosage: 275 MG, EVERY 6 WEEKS
     Route: 042
     Dates: start: 20220602
  13. INFLECTRA [Suspect]
     Active Substance: INFLIXIMAB-DYYB
     Dosage: 275 MG, EVERY 6 WEEKS
     Route: 042
     Dates: start: 20220726
  14. INFLECTRA [Suspect]
     Active Substance: INFLIXIMAB-DYYB
     Dosage: 275 MG, EVERY 6 WEEKS
     Route: 041
     Dates: start: 20220906
  15. INFLECTRA [Suspect]
     Active Substance: INFLIXIMAB-DYYB
     Dosage: 275 MG, EVERY 6 WEEKS
     Route: 041
     Dates: start: 20221129, end: 20221129
  16. INFLECTRA [Suspect]
     Active Substance: INFLIXIMAB-DYYB
     Dosage: 275 MG, 9 WEEKS 2 DAYS
     Route: 041
     Dates: start: 20230202
  17. INFLECTRA [Suspect]
     Active Substance: INFLIXIMAB-DYYB
     Dosage: 275 MG, EVERY 6 WEEKS
     Route: 041
     Dates: start: 20230316
  18. INFLECTRA [Suspect]
     Active Substance: INFLIXIMAB-DYYB
     Dosage: 275 MG, AFTER 8 WEEKS
     Route: 041
     Dates: start: 20230511
  19. INFLECTRA [Suspect]
     Active Substance: INFLIXIMAB-DYYB
     Dosage: 275 MG, AFTER 6 WEEKS (SUPPOSED TO BE EVERY 6 WEEKS)
     Route: 041
     Dates: start: 20230622
  20. INFLECTRA [Suspect]
     Active Substance: INFLIXIMAB-DYYB
     Dosage: 5 MG/KG (302.5 MG), EVERY 4 WEEKS (AFTER 6 WEEKS)
     Route: 042
     Dates: start: 20230803
  21. INFLECTRA [Suspect]
     Active Substance: INFLIXIMAB-DYYB
     Dosage: 5 MG/KG (302.5 MG), EVERY 4 WEEKS
     Route: 042
     Dates: start: 20230803
  22. INFLECTRA [Suspect]
     Active Substance: INFLIXIMAB-DYYB
     Dosage: 5 MG/KG (310 MG), EVERY 4 WEEKS (6 WEEKS)
     Route: 042
     Dates: start: 20230914
  23. INFLECTRA [Suspect]
     Active Substance: INFLIXIMAB-DYYB
     Dosage: 300 MG, EVERY 4 WEEKS
     Route: 042
     Dates: start: 20231017
  24. INFLECTRA [Suspect]
     Active Substance: INFLIXIMAB-DYYB
     Dosage: 5 MG/KG (300 MG), EVERY 4 WEEKS
     Route: 042
     Dates: start: 20231116
  25. IMURAN [Concomitant]
     Active Substance: AZATHIOPRINE
     Dosage: 275 MG, EVERY 6 WEEKS
     Route: 041

REACTIONS (19)
  - Transfusion [Recovered/Resolved]
  - Mineral supplementation [Recovered/Resolved]
  - Haemorrhage [Not Recovered/Not Resolved]
  - Nasal congestion [Recovered/Resolved]
  - Flushing [Recovered/Resolved]
  - Flushing [Recovered/Resolved]
  - Nasal congestion [Recovered/Resolved]
  - Chest discomfort [Recovered/Resolved]
  - Condition aggravated [Recovering/Resolving]
  - Blood pressure diastolic decreased [Not Recovered/Not Resolved]
  - Nausea [Unknown]
  - Malaise [Not Recovered/Not Resolved]
  - Somnolence [Unknown]
  - Inappropriate schedule of product administration [Unknown]
  - Intentional product use issue [Unknown]
  - Therapeutic product effect incomplete [Unknown]
  - Off label use [Unknown]
  - Off label use [Unknown]
  - Off label use [Unknown]

NARRATIVE: CASE EVENT DATE: 20201221
